FAERS Safety Report 7513910-3 (Version None)
Quarter: 2011Q2

REPORT INFORMATION
  Report Type: 
  Country: None (occurrence: None)
  Receive Date: 20110531
  Receipt Date: 20110524
  Transmission Date: 20111010
  Serious: Yes (Hospitalization, Other)
  Sender: FDA-Public Use
  Company Number: PHHO2009JP08704

PATIENT
  Sex: Male
  Weight: 63 kg

DRUGS (7)
  1. IMATINIB MESYLATE [Suspect]
     Dosage: 400 MG, DAILY
     Dates: start: 20071226, end: 20090708
  2. IMATINIB MESYLATE [Suspect]
     Indication: CHRONIC MYELOID LEUKAEMIA
     Dosage: 400 MG, DAILY
     Route: 048
     Dates: start: 20071213, end: 20071223
  3. NILOTINIB [Suspect]
     Indication: CHRONIC MYELOID LEUKAEMIA
     Dosage: 800 MG, UNK
     Route: 048
     Dates: start: 20090710
  4. TAMSULOSIN HCL [Concomitant]
     Indication: BENIGN PROSTATIC HYPERPLASIA
     Dosage: UNK
     Dates: start: 20000101
  5. IMATINIB MESYLATE [Suspect]
     Dosage: UNK
     Dates: start: 20071225, end: 20071225
  6. IMATINIB MESYLATE [Suspect]
     Dosage: 800 MG, DAILY
     Route: 048
     Dates: start: 20071224, end: 20071224
  7. ISODINE [Concomitant]
     Indication: NASOPHARYNGITIS

REACTIONS (8)
  - VENOUS THROMBOSIS LIMB [None]
  - PERIARTHRITIS [None]
  - PAIN IN EXTREMITY [None]
  - DRUG INEFFECTIVE [None]
  - GENE MUTATION [None]
  - NEOPLASM MALIGNANT [None]
  - BLAST CRISIS IN MYELOGENOUS LEUKAEMIA [None]
  - HYPOPHOSPHATAEMIA [None]
